FAERS Safety Report 6420852-3 (Version None)
Quarter: 2009Q4

REPORT INFORMATION
  Report Type: 
  Country: None (occurrence: None)
  Receive Date: 20091030
  Receipt Date: 20091015
  Transmission Date: 20100525
  Serious: Yes (Life-Threatening, Hospitalization, Disabling, Other)
  Sender: FDA-Public Use
  Company Number: CA-BAYER-200929072NA

PATIENT
  Age: 62 Year
  Sex: Female
  Weight: 91 kg

DRUGS (6)
  1. BETASERON [Suspect]
     Indication: RELAPSING-REMITTING MULTIPLE SCLEROSIS
     Dosage: TOTAL DAILY DOSE: 8 MIU
     Route: 058
     Dates: start: 19991212
  2. EFFEXOR [Concomitant]
  3. DETROL [Concomitant]
  4. AMITRIPTYLINE [Concomitant]
  5. NEURONTIN [Concomitant]
  6. BACLOFEN [Concomitant]

REACTIONS (3)
  - GLIOBLASTOMA [None]
  - MEMORY IMPAIRMENT [None]
  - VEIN DISORDER [None]
